FAERS Safety Report 7738183-8 (Version None)
Quarter: 2011Q3

REPORT INFORMATION
  Report Type: 
  Country: None (occurrence: None)
  Receive Date: 20110906
  Receipt Date: 20110823
  Transmission Date: 20111222
  Serious: Yes (Hospitalization)
  Sender: FDA-Public Use
  Company Number: 1000022720

PATIENT
  Age: 63 Year
  Sex: Male
  Weight: 88 kg

DRUGS (11)
  1. OMEPRAZOLE [Concomitant]
  2. PANTOPRAZOL (PANTOPRAZOLE) [Concomitant]
  3. ROFLUMILAST (ROFLUMILAST) (TABLETS) [Suspect]
     Indication: CHRONIC OBSTRUCTIVE PULMONARY DISEASE
     Dosage: 500 MCG (500 MCG, 21 IN 1)
     Dates: start: 20110418, end: 20110523
  4. SPIRIVA (TIOTROPIUM BROMIDE) (TIOTROPIUM BROMIDE) [Concomitant]
  5. CLOPIDOGREL [Concomitant]
  6. SYMBICORT (BUDESONIDE, FORMOTEROL FUMARATE) (BUDESONIDE, FORMOTEROL FU [Concomitant]
  7. SIMVASTATIN [Concomitant]
  8. ASS (ACETYLSALICYLIC ACID) (ACETYLSALICYLIC ACID) [Concomitant]
  9. RAMIPRIL [Concomitant]
  10. PREDNISOLONE [Concomitant]
  11. BISOPROLOL FUMARATE [Concomitant]

REACTIONS (7)
  - ELECTROCARDIOGRAM T WAVE INVERSION [None]
  - ARTERIOSCLEROSIS CORONARY ARTERY [None]
  - CONDITION AGGRAVATED [None]
  - CHRONIC OBSTRUCTIVE PULMONARY DISEASE [None]
  - ANGINA UNSTABLE [None]
  - CORONARY ARTERY DISSECTION [None]
  - BLOOD SODIUM INCREASED [None]
